FAERS Safety Report 6005414-4 (Version None)
Quarter: 2008Q4

REPORT INFORMATION
  Report Type: 
  Country: None (occurrence: None)
  Receive Date: 20081217
  Receipt Date: 20081202
  Transmission Date: 20090506
  Serious: Yes (Hospitalization)
  Sender: FDA-Public Use
  Company Number: FR-CELGENEUS-056-C5013-08110661

PATIENT
  Sex: Female
  Weight: 66 kg

DRUGS (16)
  1. REVLIMID [Suspect]
     Indication: MULTIPLE MYELOMA
     Route: 048
  2. THALIDOMIDE [Suspect]
     Indication: MULTIPLE MYELOMA
     Route: 048
     Dates: start: 20081001, end: 20081013
  3. THALIDOMIDE [Suspect]
     Route: 048
     Dates: start: 20081014, end: 20081107
  4. THALIDOMIDE [Suspect]
     Route: 048
     Dates: start: 20081124
  5. MELPHALAN [Suspect]
     Indication: MULTIPLE MYELOMA
     Route: 065
     Dates: start: 20081001, end: 20081004
  6. PREDNISONE TAB [Suspect]
     Indication: MULTIPLE MYELOMA
     Route: 065
     Dates: start: 20081001, end: 20081004
  7. CANDESARTAN [Concomitant]
     Indication: HYPERTENSION
     Route: 048
  8. EPREX [Concomitant]
     Route: 051
     Dates: start: 20081009
  9. AMLOD [Concomitant]
     Indication: HYPERTENSION
     Route: 048
  10. COKENZEN [Concomitant]
     Indication: DRUG USE FOR UNKNOWN INDICATION
     Route: 065
  11. PRAVASTATIN [Concomitant]
     Indication: DRUG USE FOR UNKNOWN INDICATION
     Route: 065
  12. KARDEGIC [Concomitant]
     Indication: DRUG USE FOR UNKNOWN INDICATION
     Route: 065
  13. CACIT 1000 VIT D3 [Concomitant]
     Indication: DRUG USE FOR UNKNOWN INDICATION
     Route: 065
  14. RABEPRAZOLE SODIUM [Concomitant]
     Indication: GASTRIC ULCER
     Route: 048
     Dates: start: 20070221
  15. TRAMADOL HCL [Concomitant]
     Indication: PAIN
     Route: 048
     Dates: start: 20070221
  16. INIPOMP [Concomitant]
     Indication: DRUG USE FOR UNKNOWN INDICATION
     Route: 065

REACTIONS (1)
  - PNEUMONITIS [None]
